FAERS Safety Report 16719850 (Version 1)
Quarter: 2019Q4

REPORT INFORMATION
  Report Type: Spontaneous
  Country: US (occurrence: US)
  Receive Date: 20190819
  Receipt Date: 20190819
  Transmission Date: 20200122
  Serious: Yes (Other)
  Sender: FDA-Public Use
  Company Number: None

PATIENT
  Age: 73 Year
  Sex: Female

DRUGS (2)
  1. SILDENAFIL. [Suspect]
     Active Substance: SILDENAFIL
     Route: 048
     Dates: start: 20180813
  2. SILDENAFIL. [Concomitant]
     Active Substance: SILDENAFIL
     Dates: start: 20180813

REACTIONS (3)
  - Visual impairment [None]
  - Headache [None]
  - Epistaxis [None]

NARRATIVE: CASE EVENT DATE: 20190716
